FAERS Safety Report 23544453 (Version 1)
Quarter: 2024Q1

REPORT INFORMATION
  Report Type: Report from Study
  Country: BR (occurrence: BR)
  Receive Date: 20240220
  Receipt Date: 20240220
  Transmission Date: 20240409
  Serious: Yes (Other)
  Sender: FDA-Public Use
  Company Number: BR-002147023-NVSC2024BR034912

PATIENT
  Age: 79 Year
  Sex: Female
  Weight: 98 kg

DRUGS (1)
  1. ENTRESTO [Suspect]
     Active Substance: SACUBITRIL\VALSARTAN
     Indication: Cardiac failure
     Dosage: STARTED TREATMENT BETWEEN SEP AND OCT 2023
     Route: 065
     Dates: start: 2023

REACTIONS (5)
  - Embolism [Not Recovered/Not Resolved]
  - Pulmonary oedema [Unknown]
  - Pruritus [Not Recovered/Not Resolved]
  - Weight decreased [Unknown]
  - Cough [Not Recovered/Not Resolved]

NARRATIVE: CASE EVENT DATE: 20231101
